FAERS Safety Report 15400179 (Version 1)
Quarter: 2018Q3

REPORT INFORMATION
  Report Type: Spontaneous
  Country: US (occurrence: US)
  Receive Date: 20180919
  Receipt Date: 20180919
  Transmission Date: 20181010
  Serious: No
  Sender: FDA-Public Use
  Company Number: US-AMGEN-USASP2018129063

PATIENT
  Sex: Female

DRUGS (10)
  1. HUMIRA [Concomitant]
     Active Substance: ADALIMUMAB
     Indication: RHEUMATOID ARTHRITIS
     Dosage: UNK
  2. METHOTREXATE. [Concomitant]
     Active Substance: METHOTREXATE
     Indication: RHEUMATOID ARTHRITIS
     Dosage: UNK
  3. PREDNISONE. [Concomitant]
     Active Substance: PREDNISONE
     Indication: RHEUMATOID ARTHRITIS
     Dosage: UNK
  4. COSENTYX [Concomitant]
     Active Substance: SECUKINUMAB
     Indication: RHEUMATOID ARTHRITIS
     Dosage: UNK
  5. ORENCIA [Concomitant]
     Active Substance: ABATACEPT
     Indication: RHEUMATOID ARTHRITIS
     Dosage: UNK
  6. SULFASALAZINE. [Concomitant]
     Active Substance: SULFASALAZINE
     Indication: RHEUMATOID ARTHRITIS
     Dosage: UNK
  7. ENBREL [Suspect]
     Active Substance: ETANERCEPT
     Indication: RHEUMATOID ARTHRITIS
     Dosage: UNK
     Route: 065
  8. TRAMADOL. [Concomitant]
     Active Substance: TRAMADOL
     Indication: RHEUMATOID ARTHRITIS
     Dosage: UNK
  9. OTEZLA [Concomitant]
     Active Substance: APREMILAST
     Indication: RHEUMATOID ARTHRITIS
     Dosage: UNK
  10. XELJANZ XR [Concomitant]
     Active Substance: TOFACITINIB CITRATE
     Dosage: UNK

REACTIONS (1)
  - Drug hypersensitivity [Unknown]
